FAERS Safety Report 16742860 (Version 3)
Quarter: 2019Q3

REPORT INFORMATION
  Report Type: Spontaneous
  Country: JP (occurrence: JP)
  Receive Date: 20190827
  Receipt Date: 20190927
  Transmission Date: 20191005
  Serious: Yes (Hospitalization, Other)
  Sender: FDA-Public Use
  Company Number: JP-AMGEN-JPNSP2019087945

PATIENT
  Age: 59 Year
  Sex: Male

DRUGS (3)
  1. G-LASTA [Suspect]
     Active Substance: PEGFILGRASTIM
     Indication: COLONY STIMULATING FACTOR THERAPY
     Dosage: 3.6 MILLIGRAM, QD
     Route: 058
     Dates: start: 20190321, end: 20190321
  2. ERIBULIN MESILATE [Concomitant]
     Active Substance: ERIBULIN
     Indication: HEPATIC NEOPLASM
     Dosage: 2.7 MG, 1X/WEEK
     Route: 042
     Dates: start: 20190313, end: 20190320
  3. ERIBULIN MESILATE [Concomitant]
     Active Substance: ERIBULIN
     Indication: HEPATIC NEOPLASM

REACTIONS (1)
  - Takayasu^s arteritis [Recovered/Resolved]

NARRATIVE: CASE EVENT DATE: 20190330
